FAERS Safety Report 7556866-X (Version None)
Quarter: 2011Q2

REPORT INFORMATION
  Report Type: 
  Country: None (occurrence: None)
  Receive Date: 20110616
  Receipt Date: 20110616
  Transmission Date: 20111010
  Serious: Yes (Hospitalization, Disabling)
  Sender: FDA-Public Use
  Company Number: None

PATIENT
  Age: 38 Year
  Sex: Female
  Weight: 70.3075 kg

DRUGS (10)
  1. MACUGEN [Suspect]
     Indication: DIABETIC RETINAL OEDEMA
     Dosage: 0.3MG/Q4W/046
     Dates: start: 20100602
  2. HUMALOG [Concomitant]
  3. FEMCON FE [Concomitant]
  4. LEVIMIR [Concomitant]
  5. ULTRAM [Suspect]
  6. HUMALOG [Concomitant]
  7. MACUGEN [Suspect]
     Indication: DIABETIC RETINAL OEDEMA
     Dosage: 0.3 MG / Q4W / 046
     Dates: start: 20100630
  8. TRICOR [Concomitant]
  9. LYRICA [Concomitant]
  10. CYMBALTA [Concomitant]

REACTIONS (5)
  - DIABETIC KETOACIDOSIS [None]
  - CONSTIPATION [None]
  - RENAL FAILURE ACUTE [None]
  - DEHYDRATION [None]
  - PNEUMONIA [None]
